FAERS Safety Report 4882453-8 (Version None)
Quarter: 2005Q4

REPORT INFORMATION
  Report Type: 
  Country: None (occurrence: None)
  Receive Date: 20051201
  Receipt Date: 20050929
  Transmission Date: 20060501
  Serious: No
  Sender: FDA-Public Use
  Company Number: 2005PV002656

PATIENT
  Age: 45 Year
  Sex: Male
  Weight: 152.6354 kg

DRUGS (10)
  1. BYETTA [Suspect]
     Indication: DIABETES MELLITUS NON-INSULIN-DEPENDENT
     Dosage: SEE IMAGE
     Route: 058
     Dates: start: 20050805, end: 20050801
  2. BYETTA [Suspect]
     Indication: DIABETES MELLITUS NON-INSULIN-DEPENDENT
     Dosage: SEE IMAGE
     Route: 058
     Dates: start: 20050708, end: 20050805
  3. AVANDIA [Concomitant]
  4. ACTOS [Concomitant]
  5. DIOVAN [Concomitant]
  6. GLUCOVANCE [Concomitant]
  7. PROZAC [Concomitant]
  8. CELEBREX [Concomitant]
  9. PHENTERMINE [Concomitant]
  10. UNSPECIFIED ERECTILE DYSFUNCTION MEDICATION [Concomitant]

REACTIONS (1)
  - ARTHRALGIA [None]
